FAERS Safety Report 8977432 (Version 1)
Quarter: 2012Q4

REPORT INFORMATION
  Report Type: 
  Country: FR (occurrence: FR)
  Receive Date: 20121219
  Receipt Date: 20121219
  Transmission Date: 20130627
  Serious: No
  Sender: FDA-Public Use
  Company Number: FR-ELI_LILLY_AND_COMPANY-FR201212005543

PATIENT
  Sex: Female

DRUGS (2)
  1. CYMBALTA [Suspect]
     Dosage: UNK, unknown
     Route: 048
  2. CYMBALTA [Suspect]
     Dosage: 30 mg, qd
     Route: 048

REACTIONS (1)
  - Transaminases increased [Unknown]
